FAERS Safety Report 12404758 (Version 1)
Quarter: 2016Q2

REPORT INFORMATION
  Report Type: Spontaneous
  Country: SE (occurrence: SE)
  Receive Date: 20160525
  Receipt Date: 20160525
  Transmission Date: 20160815
  Serious: Yes (Other)
  Sender: FDA-Public Use
  Company Number: SE-BAYER-2016-099826

PATIENT
  Age: 35 Year
  Sex: Female

DRUGS (1)
  1. MIRENA [Suspect]
     Active Substance: LEVONORGESTREL
     Indication: CONTRACEPTION
     Dosage: 20 MCG/24HR, CONT
     Route: 015
     Dates: start: 201502, end: 201602

REACTIONS (6)
  - Loss of libido [Recovered/Resolved]
  - Migraine [Recovered/Resolved]
  - Breast pain [Recovered/Resolved]
  - Acne [Recovered/Resolved]
  - Depressed mood [Recovered/Resolved]
  - Vulvovaginal dryness [Recovered/Resolved]

NARRATIVE: CASE EVENT DATE: 2015
